FAERS Safety Report 8849005 (Version 1)
Quarter: 2012Q4

REPORT INFORMATION
  Report Type: Spontaneous
  Country: US (occurrence: None)
  Receive Date: 20120904
  Receipt Date: 20120904
  Transmission Date: 20130627
  Serious: Yes (Hospitalization)
  Sender: FDA-Public Use
  Company Number: None

PATIENT
  Sex: Female

DRUGS (1)
  1. SUNDOWN NATURALS NATURAL WATER PILLS [Suspect]
     Dosage: 1 pill daily with water
     Dates: start: 20120803, end: 20120805

REACTIONS (7)
  - Urticaria [None]
  - Pruritus [None]
  - Rash macular [None]
  - No therapeutic response [None]
  - Cough [None]
  - Respiratory disorder [None]
  - Impaired work ability [None]
